FAERS Safety Report 18946684 (Version 1)
Quarter: 2021Q1

REPORT INFORMATION
  Report Type: Report from Study
  Country: AT (occurrence: AT)
  Receive Date: 20210226
  Receipt Date: 20210226
  Transmission Date: 20210420
  Serious: Yes (Other)
  Sender: FDA-Public Use
  Company Number: AT-JNJFOC-20210233307

PATIENT
  Age: 6 Month
  Sex: Male

DRUGS (6)
  1. EPOPROSTENOL SODIUM. [Suspect]
     Active Substance: EPOPROSTENOL SODIUM
     Indication: PULMONARY ARTERIAL HYPERTENSION
     Route: 042
  2. NITRIC OXIDE. [Concomitant]
     Active Substance: NITRIC OXIDE
  3. OPSUMIT [Suspect]
     Active Substance: MACITENTAN
     Indication: PULMONARY ARTERIAL HYPERTENSION
     Route: 048
  4. BOSENTAN. [Suspect]
     Active Substance: BOSENTAN
     Indication: PULMONARY ARTERIAL HYPERTENSION
     Route: 065
  5. SILDENAFIL. [Concomitant]
     Active Substance: SILDENAFIL
  6. OPSUMIT [Suspect]
     Active Substance: MACITENTAN
     Route: 048

REACTIONS (4)
  - Oedema [Recovering/Resolving]
  - Blood pressure decreased [Recovering/Resolving]
  - Off label use [None]
  - Product use issue [None]
